FAERS Safety Report 4356829-1 (Version None)
Quarter: 2004Q2

REPORT INFORMATION
  Report Type: 
  Country: None (occurrence: None)
  Receive Date: 20040512
  Receipt Date: 20040413
  Transmission Date: 20050107
  Serious: Yes (Life-Threatening)
  Sender: FDA-Public Use
  Company Number: US-BRISTOL-MYERS SQUIBB COMPANY-12559191

PATIENT
  Age: 52 Year
  Sex: Male

DRUGS (5)
  1. ERBITUX [Suspect]
     Indication: COLON CANCER
     Dosage: LOADING DOSE.
     Route: 042
     Dates: start: 20040413, end: 20040413
  2. BENADRYL [Concomitant]
     Indication: PREMEDICATION
     Route: 042
     Dates: start: 20040413, end: 20040413
  3. COUMADIN [Concomitant]
  4. CAPTOPRIL [Concomitant]
  5. NADOLOL [Concomitant]

REACTIONS (5)
  - BLOOD PRESSURE INCREASED [None]
  - BRONCHOSPASM [None]
  - CHEST DISCOMFORT [None]
  - CHILLS [None]
  - HYPOXIA [None]
